FAERS Safety Report 6540593-1 (Version None)
Quarter: 2010Q1

REPORT INFORMATION
  Report Type: 
  Country: None (occurrence: None)
  Receive Date: 20100112
  Receipt Date: 20090911
  Transmission Date: 20100710
  Serious: No
  Sender: FDA-Public Use
  Company Number: 2009-00604

PATIENT
  Age: 34 Year
  Sex: Female
  Weight: 72.5755 kg

DRUGS (1)
  1. COLD REMEDY NASAL GEL [Suspect]
     Dosage: 2-3X/DAY, 10-11 MONTHS; WINTER 2009-UNTIL RECENT

REACTIONS (1)
  - ANOSMIA [None]
